APPROVED DRUG PRODUCT: ESCITALOPRAM OXALATE
Active Ingredient: ESCITALOPRAM OXALATE
Strength: EQ 5MG BASE/5ML
Dosage Form/Route: SOLUTION;ORAL
Application: A090477 | Product #001 | TE Code: AA
Applicant: CHARTWELL MOLECULAR HOLDINGS LLC
Approved: Jun 12, 2013 | RLD: No | RS: No | Type: RX